FAERS Safety Report 16184779 (Version 1)
Quarter: 2019Q2

REPORT INFORMATION
  Report Type: Spontaneous
  Country: CN (occurrence: CN)
  Receive Date: 20190411
  Receipt Date: 20190411
  Transmission Date: 20190711
  Serious: Yes (Hospitalization)
  Sender: FDA-Public Use
  Company Number: CN-NOVAST LABORATORIES, LTD-CN-2019NOV000231

PATIENT
  Age: 51 Year
  Sex: Female

DRUGS (1)
  1. CARISOPRODOL\ASPIRIN [Suspect]
     Active Substance: ASPIRIN\CARISOPRODOL
     Indication: PROPHYLAXIS
     Dosage: 200 MG PER DAY, DAILY
     Route: 065

REACTIONS (2)
  - Haemobilia [Recovered/Resolved]
  - Gallbladder rupture [Recovered/Resolved]
